FAERS Safety Report 17063331 (Version 1)
Quarter: 2019Q4

REPORT INFORMATION
  Report Type: Spontaneous
  Country: US (occurrence: US)
  Receive Date: 20191121
  Receipt Date: 20191121
  Transmission Date: 20200122
  Serious: Yes (Life-Threatening, Hospitalization, Disabling, Other)
  Sender: FDA-Public Use
  Company Number: None

PATIENT
  Age: 74 Year
  Sex: Female
  Weight: 45 kg

DRUGS (1)
  1. JANUMET [Suspect]
     Active Substance: METFORMIN HYDROCHLORIDE\SITAGLIPTIN PHOSPHATE
     Indication: DIABETIC COMPLICATION
     Dates: start: 20181025, end: 20181210

REACTIONS (4)
  - Blindness unilateral [None]
  - Renal impairment [None]
  - Visual acuity reduced [None]
  - Bacterial infection [None]

NARRATIVE: CASE EVENT DATE: 20181125
